FAERS Safety Report 4384231-5 (Version None)
Quarter: 2004Q2

REPORT INFORMATION
  Report Type: 
  Country: None (occurrence: None)
  Receive Date: 20040618
  Receipt Date: 20040607
  Transmission Date: 20050107
  Serious: Yes (Other)
  Sender: FDA-Public Use
  Company Number: 2004-06-0491

PATIENT
  Age: 24 Year
  Sex: Female

DRUGS (1)
  1. CLARITIN HIVES RELIEF [Suspect]
     Indication: RASH
     Dosage: 1 TABLET ORAL
     Route: 048
     Dates: start: 20040529, end: 20040529

REACTIONS (3)
  - DYSPNOEA [None]
  - SWOLLEN TONGUE [None]
  - TACHYCARDIA [None]
